FAERS Safety Report 9739455 (Version 1)
Quarter: 2013Q4

REPORT INFORMATION
  Report Type: Spontaneous
  Country: US (occurrence: US)
  Receive Date: 20131209
  Receipt Date: 20131209
  Transmission Date: 20140711
  Serious: No
  Sender: FDA-Public Use
  Company Number: US-ABBVIE-12P-163-1019527-00

PATIENT
  Age: 72 Year
  Sex: Male

DRUGS (2)
  1. TRILIPIX [Suspect]
     Indication: PRODUCT USED FOR UNKNOWN INDICATION
     Dates: start: 2010, end: 201211
  2. TRILIPIX [Suspect]
     Dates: start: 201212

REACTIONS (2)
  - Product quality issue [Unknown]
  - Abdominal pain [Recovered/Resolved]
